FAERS Safety Report 5113551-1 (Version None)
Quarter: 2006Q3

REPORT INFORMATION
  Report Type: 
  Country: None (occurrence: None)
  Receive Date: 20060920
  Receipt Date: 20060907
  Transmission Date: 20061208
  Serious: Yes (Other)
  Sender: FDA-Public Use
  Company Number: 229736

PATIENT
  Age: 54 Year
  Sex: Female

DRUGS (3)
  1. MABTHERA             (RITUXIMAB) [Suspect]
     Indication: SYSTEMIC LUPUS ERYTHEMATOSUS
     Dosage: 500 MG, Q2W, INTRAVENOUS
     Route: 042
  2. PREDNISOLONE [Concomitant]
  3. CORTICOSTEROID NOS               (CORTICOSTEROID NOS) [Concomitant]

REACTIONS (13)
  - ALPHA HAEMOLYTIC STREPTOCOCCAL INFECTION [None]
  - AORTIC CALCIFICATION [None]
  - AORTIC STENOSIS [None]
  - BLOOD CULTURE POSITIVE [None]
  - CARDIAC MURMUR [None]
  - COGNITIVE DISORDER [None]
  - ENDOCARDITIS BACTERIAL [None]
  - HEADACHE [None]
  - MITRAL VALVE INCOMPETENCE [None]
  - PARTIAL SEIZURES [None]
  - RASH ERYTHEMATOUS [None]
  - SYNOVITIS [None]
  - TRICUSPID VALVE INCOMPETENCE [None]
